APPROVED DRUG PRODUCT: AMINOSYN 8.5% W/ELECTROLYTES
Active Ingredient: AMINO ACIDS; MAGNESIUM CHLORIDE; POTASSIUM CHLORIDE; SODIUM CHLORIDE; SODIUM PHOSPHATE, DIBASIC
Strength: 8.5%;102MG/100ML;487MG/100ML;28MG/100ML;425MG/100ML
Dosage Form/Route: INJECTABLE;INJECTION
Application: N017673 | Product #009
Applicant: ICU MEDICAL INC
Approved: Oct 25, 2002 | RLD: No | RS: No | Type: DISCN